FAERS Safety Report 17236588 (Version 9)
Quarter: 2021Q2

REPORT INFORMATION
  Report Type: Spontaneous
  Country: US (occurrence: US)
  Receive Date: 20200106
  Receipt Date: 20210430
  Transmission Date: 20210716
  Serious: Yes (Hospitalization, Other)
  Sender: FDA-Public Use
  Company Number: US-PFIZER INC-2020002698

PATIENT
  Age: 73 Year
  Sex: Female
  Weight: 60.32 kg

DRUGS (4)
  1. SYNTHROID [Concomitant]
     Active Substance: LEVOTHYROXINE SODIUM
     Indication: THYROID DISORDER
     Dosage: UNK
  2. DILANTIN [Suspect]
     Active Substance: PHENYTOIN
     Indication: INTRACRANIAL ANEURYSM
     Dosage: 200 MG, 2X/DAY (2 CAPSULES IN THE MORNING AND 2 CAPSULES IN THE EVENING)
     Route: 048
     Dates: start: 19681216
  3. DILANTIN [Suspect]
     Active Substance: PHENYTOIN
     Indication: SEIZURE
     Dosage: 100 MG, 1X/DAY
     Dates: start: 196901
  4. LETROZOLE. [Concomitant]
     Active Substance: LETROZOLE
     Indication: BREAST CANCER FEMALE
     Dosage: UNK

REACTIONS (8)
  - Dislocation of vertebra [Unknown]
  - Pneumonia [Recovered/Resolved]
  - Foot fracture [Unknown]
  - Influenza [Recovered/Resolved]
  - Spinal cord injury [Unknown]
  - Bronchitis [Recovered/Resolved]
  - Ankle fracture [Unknown]
  - Hypoaesthesia [Unknown]

NARRATIVE: CASE EVENT DATE: 20201001
